FAERS Safety Report 4284438-1 (Version None)
Quarter: 2004Q1

REPORT INFORMATION
  Report Type: 
  Country: None (occurrence: None)
  Receive Date: 20040130
  Receipt Date: 20040114
  Transmission Date: 20041129
  Serious: Yes (Death)
  Sender: FDA-Public Use
  Company Number: JP_031202403

PATIENT
  Age: 38 Year
  Sex: Male

DRUGS (5)
  1. ONCOVIN [Suspect]
     Indication: DIFFUSE LARGE B-CELL LYMPHOMA
  2. ONCOVIN [Suspect]
     Indication: MALIGNANT ANORECTAL NEOPLASM
  3. CYCLOPHOSPHAMIDE [Concomitant]
  4. DOXORUBICIN HCL [Concomitant]
  5. PREDNISOLONE [Concomitant]

REACTIONS (6)
  - ANAL ABSCESS [None]
  - CELLULITIS [None]
  - DIFFUSE LARGE B-CELL LYMPHOMA [None]
  - FISTULA [None]
  - NEOPLASM RECURRENCE [None]
  - NEUTROPHIL COUNT DECREASED [None]
